FAERS Safety Report 23461170 (Version 1)
Quarter: 2024Q1

REPORT INFORMATION
  Report Type: Other
  Country: None (occurrence: US)
  Receive Date: 20240131
  Receipt Date: 20240131
  Transmission Date: 20240410
  Serious: No
  Sender: FDA-Public Use
  Company Number: US-Nostrum Laboratories, Inc.-2152346

PATIENT
  Age: 50 Year
  Sex: Female

DRUGS (2)
  1. HYDROCODONE BITARTRATE AND IBUPROFEN [Suspect]
     Active Substance: HYDROCODONE BITARTRATE\IBUPROFEN
     Indication: Pain
     Route: 048
  2. hydrocodone pamoate [Concomitant]
     Route: 048

REACTIONS (1)
  - Nausea [Unknown]
